FAERS Safety Report 9901346 (Version 2)
Quarter: 2014Q3

REPORT INFORMATION
  Report Type: Spontaneous
  Country: US (occurrence: US)
  Receive Date: 20140217
  Receipt Date: 20140812
  Transmission Date: 20150326
  Serious: Yes (Hospitalization)
  Sender: FDA-Public Use
  Company Number: US-009507513-1402USA007207

PATIENT
  Sex: Female
  Weight: 90.7 kg

DRUGS (1)
  1. NUVARING [Suspect]
     Active Substance: ETHINYL ESTRADIOL\ETONOGESTREL
     Indication: MENORRHAGIA
     Dosage: 0.12 MG-0.015 MG/24 HR, QM
     Route: 067
     Dates: end: 201311

REACTIONS (10)
  - Thrombectomy [Unknown]
  - Off label use [Recovered/Resolved]
  - Venous stent insertion [Unknown]
  - Sciatica [Not Recovered/Not Resolved]
  - Anxiety [Recovering/Resolving]
  - Deep vein thrombosis [Recovering/Resolving]
  - Migraine [Unknown]
  - Anaemia [Unknown]
  - Vena cava filter insertion [Unknown]
  - Abdominal pain [Unknown]

NARRATIVE: CASE EVENT DATE: 201311
